FAERS Safety Report 8609436-6 (Version None)
Quarter: 2012Q3

REPORT INFORMATION
  Report Type: 
  Country: None (occurrence: None)
  Receive Date: 20120821
  Receipt Date: 20120817
  Transmission Date: 20120928
  Serious: Yes (Other)
  Sender: FDA-Public Use
  Company Number: US-BAXTER-2012BAX009441

PATIENT
  Sex: Female
  Weight: 84.1 kg

DRUGS (26)
  1. DEXILANT [Concomitant]
     Route: 048
  2. PREMPRO [Concomitant]
     Dosage: 0.3MG/1.5MG
     Route: 048
  3. ABILIFY [Concomitant]
     Route: 048
  4. CYANOCOBALAMIN [Concomitant]
     Dosage: 1 TAB
     Route: 048
  5. ALBUTEROL [Concomitant]
  6. LYRICA [Concomitant]
     Route: 048
  7. SKELAXIN [Concomitant]
     Route: 048
  8. CHLORDIAZEPOXIDE HCL W/ CLIDINIUM BROMIDE [Concomitant]
     Route: 048
  9. INDOMETHACIN [Concomitant]
     Indication: ANKYLOSING SPONDYLITIS
     Route: 048
  10. REMICADE [Concomitant]
     Indication: ANKYLOSING SPONDYLITIS
     Route: 065
  11. FLONASE [Concomitant]
     Route: 045
  12. PROAIR HFA [Concomitant]
  13. OXYGEN [Concomitant]
  14. GAMMAGARD LIQUID [Suspect]
     Route: 042
     Dates: start: 20120619, end: 20120619
  15. SINGULAIR [Concomitant]
     Route: 048
  16. CYMBALTA [Concomitant]
     Route: 048
  17. FOLIC ACID [Concomitant]
     Route: 048
  18. REQUIP [Concomitant]
     Route: 048
  19. FLECTOR [Concomitant]
  20. ZEBUTAL [Concomitant]
     Indication: MIGRAINE
     Route: 065
  21. FLUTICASONE PROPIONATE [Concomitant]
     Indication: ASTHMA
     Dosage: 250/50
  22. VITAMIN D [Concomitant]
     Dosage: 4000 UNITS
     Route: 048
  23. METHOTREXATE [Concomitant]
  24. TRAMADOL HCL [Concomitant]
     Route: 048
  25. TRAMADOL HCL [Concomitant]
     Route: 048
  26. METHYLPREDNISOLONE [Concomitant]
     Indication: INFECTION PROPHYLAXIS
     Route: 048

REACTIONS (3)
  - HEADACHE [None]
  - UVEITIS [None]
  - IRITIS [None]
